FAERS Safety Report 15902976 (Version 2)
Quarter: 2019Q1

REPORT INFORMATION
  Report Type: Report from Study
  Country: None (occurrence: MX)
  Receive Date: 20190202
  Receipt Date: 20190206
  Transmission Date: 20190417
  Serious: Yes (Disabling)
  Sender: FDA-Public Use
  Company Number: MX-ABBVIE-19K-107-2648211-00

PATIENT
  Age: 57 Year
  Sex: Female
  Weight: 66 kg

DRUGS (1)
  1. HUMIRA [Suspect]
     Active Substance: ADALIMUMAB
     Indication: RHEUMATOID ARTHRITIS
     Route: 058

REACTIONS (7)
  - Pain in extremity [Not Recovered/Not Resolved]
  - Gait inability [Not Recovered/Not Resolved]
  - Discomfort [Not Recovered/Not Resolved]
  - Groin pain [Not Recovered/Not Resolved]
  - Musculoskeletal pain [Not Recovered/Not Resolved]
  - Insomnia [Not Recovered/Not Resolved]
  - Neck pain [Not Recovered/Not Resolved]

NARRATIVE: CASE EVENT DATE: 20190129
